FAERS Safety Report 9296536 (Version 3)
Quarter: 2013Q2

REPORT INFORMATION
  Report Type: Spontaneous
  Country: IL (occurrence: IL)
  Receive Date: 20130517
  Receipt Date: 20130614
  Transmission Date: 20140414
  Serious: Yes (Hospitalization)
  Sender: FDA-Public Use
  Company Number: IL-ELI_LILLY_AND_COMPANY-IL201304006468

PATIENT
  Sex: Male

DRUGS (6)
  1. FORTEO [Suspect]
     Indication: OSTEOPOROSIS
     Dosage: 20 UG, QD
     Route: 058
     Dates: start: 20130214
  2. PREDNISONE [Concomitant]
     Dosage: 20 UNK, QD
  3. CALCIUM +VIT D [Concomitant]
     Dosage: 600 UNK, QD
  4. VITAMIN D [Concomitant]
  5. CARDILOC [Concomitant]
     Dosage: 2.5 UNK, UNKNOWN
  6. MICROPIRIN [Concomitant]
     Dosage: 75 UNK, QD

REACTIONS (1)
  - Osteoarthritis [Recovered/Resolved]
